FAERS Safety Report 26211784 (Version 2)
Quarter: 2025Q4

REPORT INFORMATION
  Report Type: Spontaneous
  Country: US (occurrence: US)
  Receive Date: 20251230
  Receipt Date: 20251230
  Transmission Date: 20260117
  Serious: No
  Sender: TOLMAR
  Company Number: US-Tolmar-TLM-2025-09730

PATIENT

DRUGS (3)
  1. ELIGARD [Suspect]
     Active Substance: LEUPROLIDE ACETATE
     Indication: Product used for unknown indication
     Dosage: NOT ADMINISTERED?NDC: 62935-227-10?LOT:15498CUS?EXP: 04/30/2027
  2. ELIGARD [Suspect]
     Active Substance: LEUPROLIDE ACETATE
     Dosage: REPLACEMENT DOSE GIVEN
  3. DEVICE [Suspect]
     Active Substance: DEVICE
     Indication: Product used for unknown indication
     Dosage: NOT ADMINISTERED?NDC: 62935-227-10?LOT:15498CUS?EXP: 04/30/2027

REACTIONS (2)
  - Intercepted product preparation error [Unknown]
  - Device leakage [Unknown]
